FAERS Safety Report 7864633-2 (Version None)
Quarter: 2011Q4

REPORT INFORMATION
  Report Type: 
  Country: None (occurrence: None)
  Receive Date: 20111028
  Receipt Date: 20111024
  Transmission Date: 20120403
  Serious: Yes (Hospitalization)
  Sender: FDA-Public Use
  Company Number: ES-AMGEN-ESPCT2011052149

PATIENT
  Age: 48 Year
  Sex: Female

DRUGS (9)
  1. DOXORUBICIN HCL [Concomitant]
     Dosage: 127 MG, Q3WK
     Route: 042
     Dates: start: 20110829
  2. BLINDED DENOSUMAB [Suspect]
     Indication: BREAST CANCER
     Dosage: UNK UNK, Q3WK
     Route: 058
     Dates: start: 20110608
  3. BOI-K ASPARTICO [Concomitant]
     Dosage: UNK UNK, QD
     Route: 048
     Dates: start: 20110919
  4. BLINDED PLACEBO [Suspect]
     Indication: BREAST CANCER
     Dosage: UNK UNK, Q3WK
     Route: 058
     Dates: start: 20110608
  5. DOCETAXEL [Concomitant]
     Dosage: UNK UNK, Q3WK
     Route: 042
     Dates: start: 20110512, end: 20110808
  6. INSULIN [Concomitant]
     Indication: DIABETES MELLITUS
     Dosage: UNK UNK, QD
     Dates: start: 20110620
  7. OMEPRAZOLE [Concomitant]
     Dosage: 20 MG, QD
     Route: 048
  8. INDAPAMIDA [Concomitant]
     Indication: HYPERTENSION
     Dosage: 2.5 MG, QD
     Route: 048
  9. OSTINE [Concomitant]
     Dosage: UNK UNK, QD
     Route: 048
     Dates: start: 20110608

REACTIONS (2)
  - RASH [None]
  - PNEUMONIA [None]
